FAERS Safety Report 9348495 (Version 2)
Quarter: 2015Q3

REPORT INFORMATION
  Report Type: Report from Study
  Country: US (occurrence: US)
  Receive Date: 20130614
  Receipt Date: 20150731
  Transmission Date: 20151125
  Serious: No
  Sender: FDA-Public Use
  Company Number: US-ALEXION-A201301344

PATIENT

DRUGS (1)
  1. SOLIRIS [Suspect]
     Active Substance: ECULIZUMAB
     Indication: PAROXYSMAL NOCTURNAL HAEMOGLOBINURIA
     Dosage: UNK
     Route: 042

REACTIONS (5)
  - Menorrhagia [Unknown]
  - Vaginal haemorrhage [Unknown]
  - Vaginal haemorrhage [Not Recovered/Not Resolved]
  - Breast mass [Unknown]
  - Condition aggravated [Not Recovered/Not Resolved]
